FAERS Safety Report 5400901-1 (Version None)
Quarter: 2007Q3

REPORT INFORMATION
  Report Type: 
  Country: None (occurrence: None)
  Receive Date: 20070730
  Receipt Date: 20060609
  Transmission Date: 20080115
  Serious: No
  Sender: FDA-Public Use
  Company Number: A0608386A

PATIENT
  Age: 1 Year
  Sex: Female

DRUGS (1)
  1. ZANTAC 150 [Suspect]
     Route: 048

REACTIONS (3)
  - CRYING [None]
  - IRRITABILITY [None]
  - OVERDOSE [None]
